FAERS Safety Report 4552152-0 (Version None)
Quarter: 2004Q4

REPORT INFORMATION
  Report Type: 
  Country: None (occurrence: None)
  Receive Date: 20041217
  Receipt Date: 20040820
  Transmission Date: 20050328
  Serious: No
  Sender: FDA-Public Use
  Company Number: 2004-BP-05930P

PATIENT
  Age: 78 Year
  Sex: Female

DRUGS (8)
  1. SPIRIVA [Suspect]
     Indication: CHRONIC OBSTRUCTIVE AIRWAYS DISEASE
     Dosage: 18 MCG (18 MCG), IH
     Route: 055
     Dates: start: 20040601
  2. ALBUTEROL [Concomitant]
  3. AEROBID [Concomitant]
  4. COMBIVENT [Concomitant]
  5. COUMADIN [Concomitant]
  6. THEOPHYLLINE [Concomitant]
  7. VITAMINS (VITAMINS) [Concomitant]
  8. TRUSOPT [Concomitant]

REACTIONS (1)
  - HEADACHE [None]
